FAERS Safety Report 5308873-5 (Version None)
Quarter: 2007Q2

REPORT INFORMATION
  Report Type: 
  Country: None (occurrence: None)
  Receive Date: 20070426
  Receipt Date: 20070416
  Transmission Date: 20071010
  Serious: Yes (Death, Other)
  Sender: FDA-Public Use
  Company Number: HQWYE600517APR07

PATIENT
  Sex: Male
  Weight: 88.98 kg

DRUGS (13)
  1. EFFEXOR XR [Suspect]
     Indication: DEPRESSION
     Route: 048
     Dates: start: 20050304, end: 20050307
  2. EFFEXOR XR [Suspect]
     Indication: SCHIZOPHRENIA
     Route: 048
     Dates: start: 20050308, end: 20050903
  3. EFFEXOR XR [Suspect]
     Route: 048
     Dates: start: 20050904, end: 20050921
  4. EFFEXOR XR [Suspect]
     Dosage: DECREASED DOSE BY 75 MG
     Route: 048
     Dates: start: 20050922, end: 20050101
  5. EFFEXOR XR [Suspect]
     Route: 048
     Dates: start: 20050101
  6. LIPITOR [Concomitant]
  7. ATIVAN [Concomitant]
     Dosage: 1 MG (3 TIMES A DAY AS NEEDED)
  8. RISPERDAL CONSTA [Concomitant]
  9. ASCORBIC ACID/CALCIUM PANTOTHENATE/CYANOCOBALAMIN/NICOTINAMIDE/PYRIDOX [Concomitant]
     Dosage: UNKNOWN DOSE DAILY
  10. DEPAKOTE [Concomitant]
     Dosage: 1000 MG IN AM, 1500 MG IN PM
  11. WELLBUTRIN [Concomitant]
  12. CLOZAPINE [Concomitant]
  13. TYLENOL [Concomitant]
     Dosage: 650 MG AS NEEDED

REACTIONS (6)
  - ANTIDEPRESSANT DRUG LEVEL INCREASED [None]
  - DEATH [None]
  - DIARRHOEA [None]
  - DYSPNOEA [None]
  - GASTROINTESTINAL DISORDER [None]
  - VOMITING [None]
